FAERS Safety Report 21835399 (Version 1)
Quarter: 2023Q1

REPORT INFORMATION
  Report Type: Other
  Country: PT (occurrence: PT)
  Receive Date: 20230109
  Receipt Date: 20230109
  Transmission Date: 20230418
  Serious: Yes (Life-Threatening, Hospitalization, Other)
  Sender: FDA-Public Use
  Company Number: None

PATIENT

DRUGS (2)
  1. DEXAMETHASONE [Suspect]
     Active Substance: DEXAMETHASONE
     Indication: Product used for unknown indication
     Dosage: UNK
     Route: 065
  2. ATOSIBAN [Suspect]
     Active Substance: ATOSIBAN
     Indication: Product used for unknown indication
     Dosage: 2 UNK (CYCLICAL)
     Route: 065
     Dates: start: 20220209, end: 20220212

REACTIONS (2)
  - Maternal exposure during pregnancy [Unknown]
  - Non-cardiogenic pulmonary oedema [Recovered/Resolved]

NARRATIVE: CASE EVENT DATE: 20220210
